FAERS Safety Report 5119014-1 (Version None)
Quarter: 2006Q3

REPORT INFORMATION
  Report Type: 
  Country: None (occurrence: None)
  Receive Date: 20060926
  Receipt Date: 20060914
  Transmission Date: 20061208
  Serious: Yes (Other)
  Sender: FDA-Public Use
  Company Number: HQWYE790015SEP06

PATIENT
  Age: 32 Year
  Sex: Female

DRUGS (2)
  1. EFFEXOR XR [Suspect]
     Dosage: 75 MG 1X PER 1 DAY, ORAL
     Route: 048
     Dates: start: 20060301
  2. VALTREX [Concomitant]

REACTIONS (2)
  - CYST REMOVAL [None]
  - FEELING ABNORMAL [None]
